FAERS Safety Report 23328045 (Version 1)
Quarter: 2023Q4

REPORT INFORMATION
  Report Type: Spontaneous
  Country: US (occurrence: US)
  Receive Date: 20231221
  Receipt Date: 20231221
  Transmission Date: 20240110
  Serious: No
  Sender: FDA-Public Use
  Company Number: US-PERRIGO-23US012460

PATIENT
  Age: 64 Year
  Sex: Male
  Weight: 86.168 kg

DRUGS (6)
  1. NASONEX [Suspect]
     Active Substance: MOMETASONE FUROATE
     Indication: Sneezing
     Dosage: 200 MCG, BID
     Route: 045
     Dates: start: 20231016, end: 20231025
  2. NASONEX [Suspect]
     Active Substance: MOMETASONE FUROATE
     Indication: Pruritus
  3. NASONEX [Suspect]
     Active Substance: MOMETASONE FUROATE
     Indication: Feeling hot
  4. NASONEX [Suspect]
     Active Substance: MOMETASONE FUROATE
     Indication: Sinus congestion
  5. CENTRUM GENDER +50 [Concomitant]
     Indication: Supplementation therapy
     Dosage: UNK
     Route: 065
  6. VITAMIN C [Concomitant]
     Active Substance: ASCORBIC ACID
     Indication: Supplementation therapy
     Dosage: UNK
     Route: 065

REACTIONS (4)
  - Drug ineffective [Unknown]
  - Inappropriate schedule of product administration [Recovered/Resolved]
  - Incorrect dose administered [Recovered/Resolved]
  - Off label use [Recovered/Resolved]

NARRATIVE: CASE EVENT DATE: 20231016
